FAERS Safety Report 12665083 (Version 1)
Quarter: 2016Q3

REPORT INFORMATION
  Report Type: Report from Study
  Country: US (occurrence: US)
  Receive Date: 20160818
  Receipt Date: 20160818
  Transmission Date: 20161109
  Serious: Yes (Hospitalization)
  Sender: FDA-Public Use
  Company Number: US-PFIZER INC-2016376741

PATIENT
  Age: 7 Year
  Sex: Female
  Weight: 22.55 kg

DRUGS (11)
  1. DEXAMETHASONE. [Concomitant]
     Active Substance: DEXAMETHASONE
     Dosage: COURSE A: CYCLES 1, 3 AND 5 (CYCLE= 21 DAYS): DEXAMETHASONE: 5MG/M2 PO BID ON DAYS 1-5
     Route: 048
  2. DEXAMETHASONE. [Concomitant]
     Active Substance: DEXAMETHASONE
     Dosage: COURSE B: CYCLES 2, 4 AND 6 (CYCLE= 21 DAYS): DEXAMETHASONE: 5MG/M2 PO BID ON DAYS 1-5
     Route: 048
  3. CRIZOTINIB [Suspect]
     Active Substance: CRIZOTINIB
     Indication: ANAPLASTIC LARGE CELL LYMPHOMA T- AND NULL-CELL TYPES
     Dosage: COURSE A: CYCLES 1, 3 AND 5 (CYCLE= 21 DAYS): 165MG/M2 PO BID ON DAYS 1-21
     Route: 048
  4. METHOTREXATE SODIUM. [Suspect]
     Active Substance: METHOTREXATE SODIUM
     Indication: ANAPLASTIC LARGE CELL LYMPHOMA T- AND NULL-CELL TYPES
     Dosage: PROPHASE (CYCLE = 5 DAYS): 7.5-12MG IT ON DAY 1 (AGE BASED DOSING) ON PROPHASE (CYCLE = 5 DAYS);
     Route: 037
     Dates: start: 20160324
  5. DOXORUBICIN HCL [Suspect]
     Active Substance: DOXORUBICIN HYDROCHLORIDE
     Indication: ANAPLASTIC LARGE CELL LYMPHOMA T- AND NULL-CELL TYPES
     Dosage: COURSE B: CYCLES 2, 4 AND 6 (CYCLE= 21 DAYS): 25MG/M2 IV OVER 1-15 MIN ON DAYS 4 AND 5
     Route: 042
  6. METHOTREXATE SODIUM. [Suspect]
     Active Substance: METHOTREXATE SODIUM
     Dosage: COURSE A: CYCLES 1, 3 AND 5 (CYCLE= 21 DAYS): 3000MG/M2 IV OVER 3 HOURS ON DAY 1
     Route: 042
  7. METHOTREXATE SODIUM. [Suspect]
     Active Substance: METHOTREXATE SODIUM
     Dosage: COURSE B: CYCLES 2, 4 AND 6 (CYCLE= 21 DAYS): 3000MG/M2 IV OVER 3 HOURS ON DAY 1
     Route: 042
  8. CRIZOTINIB [Suspect]
     Active Substance: CRIZOTINIB
     Dosage: COURSE B: CYCLES 2, 4 AND 6 (CYCLE= 21 DAYS): 165MG/M2 PO BID ON DAYS 1-21
     Route: 048
     Dates: end: 20160726
  9. CYCLOPHOSPHAMIDE. [Concomitant]
     Active Substance: CYCLOPHOSPHAMIDE
     Indication: ANAPLASTIC LARGE CELL LYMPHOMA T- AND NULL-CELL TYPES
     Dosage: PROPHASE (CYCLE = 5 DAYS): 200MG/M2 IV OVER 15-30 MINUTES ON DAYS 1 AND 2
     Route: 042
     Dates: start: 20160324
  10. CYCLOPHOSPHAMIDE. [Concomitant]
     Active Substance: CYCLOPHOSPHAMIDE
     Dosage: COURSE B: CYCLES 2, 4 AND 6 (CYCLE= 21 DAYS):  200MG/M2 IV OVER 15-30 MINUTES ON DA
     Route: 042
  11. DEXAMETHASONE. [Concomitant]
     Active Substance: DEXAMETHASONE
     Indication: ANAPLASTIC LARGE CELL LYMPHOMA T- AND NULL-CELL TYPES
     Dosage: PROPHASE (CYCLE = 5 DAYS): 5MG/M2 PO QD ON DAYS 1-2, AND 5MG/M2 PO BID ON DAYS 3-5
     Route: 048
     Dates: start: 20160324

REACTIONS (1)
  - Blood bilirubin increased [Unknown]

NARRATIVE: CASE EVENT DATE: 20160727
